FAERS Safety Report 6285461-8 (Version None)
Quarter: 2009Q3

REPORT INFORMATION
  Report Type: 
  Country: None (occurrence: None)
  Receive Date: 20090727
  Receipt Date: 20090609
  Transmission Date: 20100115
  Serious: Yes (Disabling, Other)
  Sender: FDA-Public Use
  Company Number: DE-CELGENEUS-062-50794-09010929

PATIENT
  Sex: Male

DRUGS (1)
  1. VIDAZA [Suspect]
     Indication: DRUG USE FOR UNKNOWN INDICATION
     Route: 058

REACTIONS (5)
  - ASTHENIA [None]
  - BEDRIDDEN [None]
  - FATIGUE [None]
  - NAUSEA [None]
  - PERFORMANCE STATUS DECREASED [None]
